FAERS Safety Report 13763652 (Version 6)
Quarter: 2020Q3

REPORT INFORMATION
  Report Type: Spontaneous
  Country: US (occurrence: US)
  Receive Date: 20170718
  Receipt Date: 20200724
  Transmission Date: 20201102
  Serious: Yes (Hospitalization)
  Sender: FDA-Public Use
  Company Number: US-ELI_LILLY_AND_COMPANY-US201706013580

PATIENT
  Age: 28 Year
  Sex: Male
  Weight: 103 kg

DRUGS (9)
  1. ZITHROMAX [Interacting]
     Active Substance: AZITHROMYCIN DIHYDRATE
     Indication: BRONCHITIS
     Dosage: UNK UNK, UNKNOWN
     Route: 065
  2. FLUOXETINE [Concomitant]
     Active Substance: FLUOXETINE HYDROCHLORIDE
     Indication: ANXIETY
     Dosage: UNK, UNKNOWN
     Route: 065
  3. FLUOXETINE [Concomitant]
     Active Substance: FLUOXETINE HYDROCHLORIDE
     Indication: DEPRESSION
  4. IBUPROFEN. [Concomitant]
     Active Substance: IBUPROFEN
     Indication: MYOSITIS
     Dosage: UNK, UNKNOWN
     Route: 065
  5. STRATTERA [Interacting]
     Active Substance: ATOMOXETINE HYDROCHLORIDE
     Dosage: 80 MG, DAILY
     Route: 048
     Dates: start: 201109, end: 20170619
  6. STRATTERA [Interacting]
     Active Substance: ATOMOXETINE HYDROCHLORIDE
     Dosage: 100 MG, DAILY
     Route: 048
     Dates: end: 20191002
  7. SUDAFED [Suspect]
     Active Substance: PSEUDOEPHEDRINE HYDROCHLORIDE
     Indication: PRODUCT USED FOR UNKNOWN INDICATION
     Dosage: UNK, UNKNOWN
     Route: 065
  8. STRATTERA [Suspect]
     Active Substance: ATOMOXETINE HYDROCHLORIDE
     Indication: ATTENTION DEFICIT HYPERACTIVITY DISORDER
     Dosage: 40 MG, DAILY
     Route: 048
     Dates: start: 2012
  9. ATOMOXETINE. [Interacting]
     Active Substance: ATOMOXETINE HYDROCHLORIDE
     Indication: ATTENTION DEFICIT HYPERACTIVITY DISORDER
     Dosage: 80 MG, EACH MORNING
     Route: 048
     Dates: start: 20170620, end: 20170627

REACTIONS (26)
  - Vertigo [Recovering/Resolving]
  - Paraesthesia [Unknown]
  - Ejaculation failure [Recovered/Resolved]
  - Sexual dysfunction [Unknown]
  - Retrograde ejaculation [Not Recovered/Not Resolved]
  - Balance disorder [Recovering/Resolving]
  - Hypoaesthesia [Recovering/Resolving]
  - Decreased appetite [Recovered/Resolved]
  - Hypotension [Recovered/Resolved]
  - Blood pressure increased [Recovered/Resolved]
  - Dry mouth [Recovering/Resolving]
  - Prostatic pain [Recovered/Resolved]
  - Erectile dysfunction [Not Recovered/Not Resolved]
  - Dysuria [Recovered/Resolved]
  - Ejaculation delayed [Not Recovered/Not Resolved]
  - Hypothyroidism [Recovered/Resolved]
  - Bronchitis [Recovered/Resolved]
  - Ejaculation disorder [Recovered/Resolved]
  - Painful ejaculation [Recovered/Resolved]
  - Erection increased [Recovered/Resolved]
  - Hypotension [Recovered/Resolved]
  - Peripheral coldness [Recovering/Resolving]
  - Drug interaction [Recovered/Resolved]
  - Dizziness [Recovering/Resolving]
  - Hypokinesia [Recovering/Resolving]
  - Constipation [Recovered/Resolved]

NARRATIVE: CASE EVENT DATE: 201109
